FAERS Safety Report 5472566-4 (Version None)
Quarter: 2007Q4

REPORT INFORMATION
  Report Type: 
  Country: None (occurrence: None)
  Receive Date: 20071001
  Receipt Date: 20070806
  Transmission Date: 20080405
  Serious: No
  Sender: FDA-Public Use
  Company Number: US-ASTRAZENECA-2006UW03754

PATIENT
  Age: 69 Year
  Sex: Female
  Weight: 56.7 kg

DRUGS (3)
  1. ARIMIDEX [Suspect]
     Indication: BREAST CANCER
     Route: 048
     Dates: start: 20060301
  2. DIOVAN [Concomitant]
  3. LIPITOR [Concomitant]

REACTIONS (3)
  - MUSCULOSKELETAL PAIN [None]
  - POLLAKIURIA [None]
  - THERAPEUTIC RESPONSE UNEXPECTED [None]
